FAERS Safety Report 7301643-8 (Version None)
Quarter: 2011Q1

REPORT INFORMATION
  Report Type: 
  Country: None (occurrence: None)
  Receive Date: 20110218
  Receipt Date: 20110204
  Transmission Date: 20110831
  Serious: Yes (Hospitalization, Other)
  Sender: FDA-Public Use
  Company Number: US-MYLANLABS-2011S1002565

PATIENT
  Age: 62 Year
  Sex: Female

DRUGS (2)
  1. OMEPRAZOLE [Concomitant]
     Indication: PEPTIC ULCER
     Dosage: EACH TIME SHE REQUIRED IBUPROFEN
     Route: 065
  2. IBUPROFEN [Suspect]
     Indication: PLANTAR FASCIITIS
     Dosage: AS NEEDED
     Route: 065

REACTIONS (1)
  - GASTROINTESTINAL DISORDER [None]
